FAERS Safety Report 18513260 (Version 4)
Quarter: 2020Q4

REPORT INFORMATION
  Report Type: Spontaneous
  Country: US (occurrence: US)
  Receive Date: 20201117
  Receipt Date: 20201231
  Transmission Date: 20210114
  Serious: No
  Sender: FDA-Public Use
  Company Number: US-PFIZER INC-2020451400

PATIENT
  Age: 82 Year
  Sex: Male

DRUGS (1)
  1. ADVIL [Suspect]
     Active Substance: IBUPROFEN
     Dosage: UNK
     Dates: end: 202011

REACTIONS (10)
  - Micturition disorder [Unknown]
  - Constipation [Not Recovered/Not Resolved]
  - Product colour issue [Unknown]
  - Gastric disorder [Not Recovered/Not Resolved]
  - Flatulence [Not Recovered/Not Resolved]
  - Pain [Unknown]
  - Product residue present [Unknown]
  - Gastrointestinal disorder [Not Recovered/Not Resolved]
  - Poor quality product administered [Unknown]
  - Bladder neoplasm [Unknown]
